FAERS Safety Report 5008494-8 (Version None)
Quarter: 2006Q2

REPORT INFORMATION
  Report Type: 
  Country: None (occurrence: None)
  Receive Date: 20060522
  Receipt Date: 20060522
  Transmission Date: 20061013
  Serious: Yes (Other)
  Sender: FDA-Public Use
  Company Number: None

PATIENT
  Age: 49 Year
  Sex: Female
  Weight: 67.586 kg

DRUGS (13)
  1. VYTORIN [Suspect]
     Indication: BLOOD CHOLESTEROL INCREASED
     Dosage: 1 TABLET ONCE DAILY ORALLY
     Route: 048
     Dates: start: 20041101, end: 20060201
  2. CREON [Concomitant]
  3. SYNTHROID [Concomitant]
  4. METOPROLOL [Concomitant]
  5. MAXZIDE [Concomitant]
  6. COLCHICINE [Concomitant]
  7. LIBRAX [Concomitant]
  8. ALLEGRA [Concomitant]
  9. NASONEX SPRAY [Concomitant]
  10. LOESTRIN 24 [Concomitant]
  11. PRESERVISION [Concomitant]
  12. MAGNESIUM SULFATE [Concomitant]
  13. CALTRATE WITH VIT. D [Concomitant]

REACTIONS (5)
  - BLOOD THYROID STIMULATING HORMONE ABNORMAL [None]
  - CONSTIPATION [None]
  - DIARRHOEA [None]
  - MYALGIA [None]
  - PANCREATITIS [None]
